FAERS Safety Report 4588271-2 (Version None)
Quarter: 2005Q1

REPORT INFORMATION
  Report Type: 
  Country: None (occurrence: None)
  Receive Date: 20050222
  Receipt Date: 20050207
  Transmission Date: 20050727
  Serious: Yes (Hospitalization)
  Sender: FDA-Public Use
  Company Number: US-JNJFOC-20050202282

PATIENT
  Age: 56 Year
  Sex: Male

DRUGS (12)
  1. BLINDED; INFLIXIMAB, RECOMBINANT [Suspect]
     Route: 042
  2. BLINDED; INFLIXIMAB, RECOMBINANT [Suspect]
     Route: 042
  3. BLINDED; INFLIXIMAB, RECOMBINANT [Suspect]
     Route: 042
  4. BLINDED; INFLIXIMAB, RECOMBINANT [Suspect]
     Route: 042
  5. BLINDED; INFLIXIMAB, RECOMBINANT [Suspect]
     Route: 042
  6. BLINDED; INFLIXIMAB, RECOMBINANT [Suspect]
     Route: 042
  7. BLINDED; INFLIXIMAB, RECOMBINANT [Suspect]
     Indication: DERMATOMYOSITIS
     Route: 042
  8. PLACEBO [Suspect]
     Route: 042
  9. PLACEBO [Suspect]
     Route: 042
  10. PLACEBO [Suspect]
     Indication: DERMATOMYOSITIS
     Route: 042
  11. IMURAN [Concomitant]
  12. SOLU-MEDROL [Concomitant]
     Route: 042

REACTIONS (15)
  - ACUTE RESPIRATORY DISTRESS SYNDROME [None]
  - ASTHENIA [None]
  - BONE PAIN [None]
  - CARDIAC MURMUR [None]
  - CHILLS [None]
  - COUGH [None]
  - DRUG INTERACTION [None]
  - HYPOAESTHESIA [None]
  - LUNG NEOPLASM [None]
  - MALAISE [None]
  - MOTOR DYSFUNCTION [None]
  - PNEUMONITIS [None]
  - PYREXIA [None]
  - SENSORY LOSS [None]
  - VOMITING [None]
